FAERS Safety Report 23563694 (Version 1)
Quarter: 2024Q1

REPORT INFORMATION
  Report Type: Spontaneous
  Country: US (occurrence: US)
  Receive Date: 20240226
  Receipt Date: 20240226
  Transmission Date: 20240409
  Serious: Yes (Other)
  Sender: FDA-Public Use
  Company Number: US-Accord-371726

PATIENT
  Age: 24 Year
  Sex: Male
  Weight: 68.04 kg

DRUGS (1)
  1. BUSPIRONE [Suspect]
     Active Substance: BUSPIRONE HYDROCHLORIDE
     Indication: Product used for unknown indication
     Dosage: 15 MG ORALLY TWICE DAILY
     Route: 048

REACTIONS (1)
  - Pain in extremity [Recovered/Resolved]
